FAERS Safety Report 17681176 (Version 1)
Quarter: 2020Q2

REPORT INFORMATION
  Report Type: Spontaneous
  Country: CA (occurrence: CA)
  Receive Date: 20200417
  Receipt Date: 20200417
  Transmission Date: 20200714
  Serious: Yes (Hospitalization, Other)
  Sender: FDA-Public Use
  Company Number: NVSC2020CA101672

PATIENT
  Age: 91 Year
  Sex: Female

DRUGS (8)
  1. MORPHINE SULFATE. [Suspect]
     Active Substance: MORPHINE SULFATE
     Indication: PRODUCT USED FOR UNKNOWN INDICATION
     Dosage: UNK
     Route: 065
  2. HCTZ [Concomitant]
     Active Substance: HYDROCHLOROTHIAZIDE
     Indication: PRODUCT USED FOR UNKNOWN INDICATION
     Dosage: UNK, QD (EVERY 1 DAYS)
     Route: 065
  3. CANDESARTAN CILEXETIL/HYDROCHLOORTHIAZIDE [Concomitant]
     Active Substance: CANDESARTAN CILEXETIL\HYDROCHLOROTHIAZIDE
     Indication: PRODUCT USED FOR UNKNOWN INDICATION
     Dosage: UNK
     Route: 065
  4. DUREZOL [Concomitant]
     Active Substance: DIFLUPREDNATE
     Indication: GLAUCOMA
     Dosage: 1 DF
     Route: 057
  5. CANDESARTAN+HYDROCHLOROTHIAZIDE [Concomitant]
     Active Substance: CANDESARTAN CILEXETIL\HYDROCHLOROTHIAZIDE
     Indication: PRODUCT USED FOR UNKNOWN INDICATION
     Dosage: UNK UNK, QD
     Route: 065
  6. ZYMAR [Concomitant]
     Active Substance: GATIFLOXACIN
     Indication: GLAUCOMA
     Dosage: 1 DF
     Route: 057
  7. HYDROCHLOROTHIAZIDE. [Concomitant]
     Active Substance: HYDROCHLOROTHIAZIDE
     Indication: PRODUCT USED FOR UNKNOWN INDICATION
     Dosage: UNK
     Route: 065
  8. SANDOSTATIN LAR DEPOT [Suspect]
     Active Substance: OCTREOTIDE ACETATE
     Indication: ACROMEGALY
     Dosage: 10 MG, QMO (1 EVERY 1 MONTHS)
     Route: 030

REACTIONS (17)
  - Pain [Recovered/Resolved]
  - Inappropriate schedule of product administration [Recovered/Resolved]
  - Hip fracture [Recovered/Resolved]
  - Cough [Recovered/Resolved]
  - Hypotension [Recovered/Resolved]
  - Diarrhoea [Recovered/Resolved]
  - Dizziness [Recovered/Resolved]
  - Heart rate irregular [Recovered/Resolved]
  - Influenza [Recovered/Resolved]
  - Malaise [Recovered/Resolved]
  - Bradycardia [Recovered/Resolved]
  - Arthralgia [Recovered/Resolved]
  - Depression [Recovered/Resolved]
  - Fall [Recovered/Resolved]
  - Pneumonia [Recovered/Resolved]
  - Blood pressure decreased [Recovered/Resolved]
  - Blood pressure systolic increased [Recovered/Resolved]
